FAERS Safety Report 13793897 (Version 2)
Quarter: 2017Q4

REPORT INFORMATION
  Report Type: Spontaneous
  Country: US (occurrence: US)
  Receive Date: 20170726
  Receipt Date: 20171117
  Transmission Date: 20180320
  Serious: Yes (Hospitalization)
  Sender: FDA-Public Use
  Company Number: US-WEST-WARD PHARMACEUTICALS CORP.-US-H14001-17-02619

PATIENT
  Age: 81 Year
  Sex: Female

DRUGS (3)
  1. DONEPEZIL. [Concomitant]
     Active Substance: DONEPEZIL
     Indication: DEMENTIA
     Route: 065
  2. LACOSAMIDE. [Concomitant]
     Active Substance: LACOSAMIDE
     Indication: EPILEPSY
     Route: 065
  3. PHENYTOIN. [Suspect]
     Active Substance: PHENYTOIN
     Indication: EPILEPSY
     Route: 065

REACTIONS (8)
  - Confusional state [Recovered/Resolved]
  - Disturbance in attention [Recovered/Resolved]
  - Dizziness [Recovered/Resolved]
  - Atrophy [Recovered/Resolved]
  - Ataxia [Recovered/Resolved]
  - Toxicity to various agents [Recovered/Resolved]
  - Nystagmus [Recovered/Resolved]
  - Fall [Recovered/Resolved]
